FAERS Safety Report 5973123-3 (Version None)
Quarter: 2008Q4

REPORT INFORMATION
  Report Type: 
  Country: None (occurrence: None)
  Receive Date: 20081126
  Receipt Date: 20081126
  Transmission Date: 20090506
  Serious: Yes (Hospitalization)
  Sender: FDA-Public Use
  Company Number: None

PATIENT
  Age: 70 Year
  Sex: Male
  Weight: 71.2147 kg

DRUGS (2)
  1. CISPLATIN 100MG/ML BEDORD [Suspect]
     Indication: HEAD AND NECK CANCER
     Dosage: 100MG/M2 EVERY 3 WEEKS X 3 IV DRIP
     Route: 041
     Dates: start: 20080908, end: 20081031
  2. ERLOTINIB 150MG GENETECH [Suspect]
     Dosage: ERLOTINIB  ONCE PER DAY X 54 PO
     Route: 048
     Dates: start: 20080901, end: 20081031

REACTIONS (3)
  - DEHYDRATION [None]
  - FLUID INTAKE REDUCED [None]
  - HYPOPHAGIA [None]
